FAERS Safety Report 17068453 (Version 1)
Quarter: 2019Q4

REPORT INFORMATION
  Report Type: Spontaneous
  Country: FR (occurrence: FR)
  Receive Date: 20191123
  Receipt Date: 20191123
  Transmission Date: 20200122
  Serious: Yes (Hospitalization)
  Sender: FDA-Public Use
  Company Number: FR-ACCORD-161949

PATIENT
  Age: 77 Year
  Sex: Female
  Weight: 67.5 kg

DRUGS (4)
  1. FUROSEMIDE. [Suspect]
     Active Substance: FUROSEMIDE
     Indication: CARDIAC FAILURE
     Route: 048
     Dates: end: 20191009
  2. SULFAMETHOXAZOLE/SULFAMETHOXAZOLE SODIUM [Interacting]
     Active Substance: SULFAMETHOXAZOLE
     Indication: PYELONEPHRITIS ACUTE
     Route: 048
     Dates: start: 20190929, end: 20191008
  3. RAMIPRIL. [Interacting]
     Active Substance: RAMIPRIL
     Indication: CARDIAC FAILURE
     Route: 048
     Dates: end: 20191009
  4. TRIMETHOPRIM. [Interacting]
     Active Substance: TRIMETHOPRIM
     Indication: PYELONEPHRITIS ACUTE
     Route: 048
     Dates: start: 20190929, end: 20191008

REACTIONS (3)
  - Hyperkalaemia [Recovered/Resolved]
  - Drug interaction [Unknown]
  - Acute kidney injury [Recovered/Resolved]

NARRATIVE: CASE EVENT DATE: 20191003
